FAERS Safety Report 8959298 (Version 1)
Quarter: 2012Q4

REPORT INFORMATION
  Report Type: 
  Country: CH (occurrence: CH)
  Receive Date: 20121212
  Receipt Date: 20121212
  Transmission Date: 20130627
  Serious: Yes (Hospitalization)
  Sender: FDA-Public Use
  Company Number: CH-ROCHE-1165319

PATIENT
  Age: 70 Year
  Sex: Female

DRUGS (14)
  1. RIVOTRIL [Suspect]
     Indication: PRODUCT USED FOR UNKNOWN INDICATION
     Route: 048
  2. XANAX [Suspect]
     Indication: PRODUCT USED FOR UNKNOWN INDICATION
     Route: 048
  3. EXFORGE HCT [Suspect]
     Indication: ESSENTIAL HYPERTENSION
     Route: 048
  4. CIPRALEX [Suspect]
     Indication: PRODUCT USED FOR UNKNOWN INDICATION
     Route: 048
  5. HALCION [Suspect]
     Indication: PRODUCT USED FOR UNKNOWN INDICATION
     Route: 048
  6. TEMESTA [Suspect]
     Indication: PRODUCT USED FOR UNKNOWN INDICATION
     Route: 048
  7. SIRDALUD [Suspect]
     Indication: PRODUCT USED FOR UNKNOWN INDICATION
     Route: 048
  8. SEROQUEL [Suspect]
     Indication: PRODUCT USED FOR UNKNOWN INDICATION
     Route: 048
  9. MOVICOL [Concomitant]
  10. ASPIRIN CARDIO [Concomitant]
     Route: 048
  11. MAGNESIUM CARBONATE [Concomitant]
     Route: 048
  12. OMEPRAZOLE [Concomitant]
     Route: 048
  13. CEFTRIAXONE [Concomitant]
     Route: 042
  14. PSYCHOTROPIC DRUG NOS [Concomitant]

REACTIONS (5)
  - Fall [Recovering/Resolving]
  - Muscular weakness [Unknown]
  - Electrocardiogram QT prolonged [Recovered/Resolved]
  - Hypokalaemia [Recovered/Resolved]
  - Hyponatraemia [Recovered/Resolved]
